FAERS Safety Report 5010962-X (Version None)
Quarter: 2006Q2

REPORT INFORMATION
  Report Type: 
  Country: None (occurrence: None)
  Receive Date: 20060523
  Receipt Date: 20060523
  Transmission Date: 20061013
  Serious: Yes (Disabling)
  Sender: FDA-Public Use
  Company Number: None

PATIENT
  Age: 61 Year
  Sex: Female
  Weight: 62 kg

DRUGS (3)
  1. HEPARIN [Suspect]
     Indication: ATRIAL FIBRILLATION
  2. HEPARIN [Suspect]
     Indication: SPINAL CORD INFARCTION
  3. WARFARIN [Suspect]
     Dosage: 5 MG Q DAY

REACTIONS (10)
  - CEREBELLAR HAEMATOMA [None]
  - DEPRESSION [None]
  - HAEMATOMA [None]
  - IMPLANT SITE HAEMATOMA [None]
  - IMPLANT SITE HAEMORRHAGE [None]
  - IMPLANT SITE PAIN [None]
  - IMPLANT SITE SWELLING [None]
  - INTERNATIONAL NORMALISED RATIO DECREASED [None]
  - MENTAL STATUS CHANGES [None]
  - PNEUMONIA ASPIRATION [None]
